FAERS Safety Report 8212961-3 (Version None)
Quarter: 2012Q1

REPORT INFORMATION
  Report Type: 
  Country: None (occurrence: None)
  Receive Date: 20120315
  Receipt Date: 20120313
  Transmission Date: 20120608
  Serious: Yes (Hospitalization)
  Sender: FDA-Public Use
  Company Number: JP-PFIZER INC-2012066416

PATIENT
  Age: 76 Year
  Sex: Female

DRUGS (12)
  1. LYRICA [Suspect]
     Dosage: 300 MG/DAY
     Route: 048
     Dates: start: 20110805, end: 20110922
  2. DOXAZOSIN MESYLATE [Concomitant]
     Dosage: UNK
     Route: 048
  3. AMARYL [Concomitant]
     Dosage: 2 MG DAILY
     Route: 048
  4. CRESTOR [Concomitant]
     Dosage: 5 MG DAILY
     Route: 048
  5. TOLTERODINE TARTRATE [Concomitant]
     Dosage: UNK
     Route: 048
  6. LANSOPRAZOLE [Concomitant]
     Dosage: 15 MG DAILY
     Route: 048
  7. DIOVAN HCT [Concomitant]
     Dosage: UNK
     Route: 048
  8. LYRICA [Suspect]
     Indication: HYPOAESTHESIA
     Dosage: 75 MG/DAY
     Route: 048
     Dates: start: 20110401, end: 20110101
  9. LYRICA [Suspect]
     Dosage: 175 MG/DAY
     Route: 048
     Dates: start: 20110722, end: 20110804
  10. BASEN [Concomitant]
     Dosage: 0.9 MG DAILY
     Route: 048
  11. LYRICA [Suspect]
     Dosage: 150 MG/DAY
     Route: 048
     Dates: start: 20110101, end: 20110721
  12. NIFEDIPINE [Concomitant]
     Dosage: 40 MG DAILY
     Route: 048

REACTIONS (5)
  - HYPOAESTHESIA [None]
  - DIZZINESS [None]
  - FALL [None]
  - DEPRESSED LEVEL OF CONSCIOUSNESS [None]
  - ASTHENIA [None]
